FAERS Safety Report 5482425-9 (Version None)
Quarter: 2007Q4

REPORT INFORMATION
  Report Type: 
  Country: None (occurrence: None)
  Receive Date: 20071011
  Receipt Date: 20071008
  Transmission Date: 20080405
  Serious: Yes (Other)
  Sender: FDA-Public Use
  Company Number: B0490572A

PATIENT
  Sex: Female

DRUGS (2)
  1. CLAVENTIN [Suspect]
     Indication: INFECTION
     Route: 042
  2. UNSPECIFIED MEDICATIONS [Concomitant]
     Indication: CYSTIC FIBROSIS
     Route: 065

REACTIONS (1)
  - CYSTITIS HAEMORRHAGIC [None]
